FAERS Safety Report 8237681-0 (Version None)
Quarter: 2012Q1

REPORT INFORMATION
  Report Type: 
  Country: None (occurrence: None)
  Receive Date: 20120327
  Receipt Date: 20120316
  Transmission Date: 20120608
  Serious: Yes (Other)
  Sender: FDA-Public Use
  Company Number: US-ACTELION-A-NJ2012-62917

PATIENT

DRUGS (4)
  1. TRACLEER [Suspect]
     Indication: PULMONARY ARTERIAL HYPERTENSION
     Dosage: UNK
     Route: 048
     Dates: start: 20040409
  2. REVATIO [Concomitant]
  3. COUMADIN [Concomitant]
  4. CALCIUM CHANNEL BLOCKERS [Concomitant]

REACTIONS (2)
  - CHEMOTHERAPY [None]
  - MULTIPLE MYELOMA [None]
